FAERS Safety Report 4955412-4 (Version None)
Quarter: 2006Q1

REPORT INFORMATION
  Report Type: 
  Country: None (occurrence: None)
  Receive Date: 20060322
  Receipt Date: 20051110
  Transmission Date: 20060701
  Serious: Yes (Other)
  Sender: FDA-Public Use
  Company Number: 2006022212

PATIENT
  Sex: Female

DRUGS (8)
  1. BEXTRA [Suspect]
     Indication: ILL-DEFINED DISORDER
  2. DIFLUCAN [Suspect]
     Indication: ILL-DEFINED DISORDER
  3. NIZORAL [Suspect]
     Indication: ILL-DEFINED DISORDER
  4. SEREVENT [Concomitant]
  5. LOTREL [Concomitant]
  6. LAMISIL [Concomitant]
  7. HYDROCORTISONE [Concomitant]
  8. PROVERA [Concomitant]

REACTIONS (7)
  - AMENORRHOEA [None]
  - ARTHRALGIA [None]
  - BACK PAIN [None]
  - BREAST PAIN [None]
  - GINGIVAL ABSCESS [None]
  - OTITIS EXTERNA [None]
  - STEVENS-JOHNSON SYNDROME [None]
